FAERS Safety Report 24192258 (Version 1)
Quarter: 2024Q3

REPORT INFORMATION
  Report Type: Spontaneous
  Country: US (occurrence: US)
  Receive Date: 20240809
  Receipt Date: 20240809
  Transmission Date: 20241017
  Serious: Yes (Other)
  Sender: PRINSTON PHARMACEUTICAL
  Company Number: US-PRINSTON PHARMACEUTICAL INC.-2023PRN00530

PATIENT
  Age: 74 Year
  Sex: Female

DRUGS (2)
  1. LISINOPRIL [Suspect]
     Active Substance: LISINOPRIL
     Dosage: 40 MG
     Dates: start: 2023, end: 2023
  2. LISINOPRIL [Suspect]
     Active Substance: LISINOPRIL
     Dosage: LOWER DOSE
     Dates: start: 2023

REACTIONS (5)
  - Mouth swelling [Recovered/Resolved]
  - Head discomfort [Recovered/Resolved]
  - Reaction to excipient [Recovered/Resolved]
  - Headache [Recovered/Resolved]
  - Unevaluable event [Recovered/Resolved]

NARRATIVE: CASE EVENT DATE: 20230101
